FAERS Safety Report 9717005 (Version 1)
Quarter: 2013Q4

REPORT INFORMATION
  Report Type: Spontaneous
  Country: US (occurrence: US)
  Receive Date: 20131127
  Receipt Date: 20131127
  Transmission Date: 20140711
  Serious: No
  Sender: FDA-Public Use
  Company Number: US-GILEAD-2009-0020253

PATIENT
  Sex: Female
  Weight: 70.76 kg

DRUGS (9)
  1. LETAIRIS [Suspect]
     Indication: PULMONARY ARTERIAL HYPERTENSION
  2. DIOVAN HCT [Concomitant]
  3. COREG [Concomitant]
  4. XOPENEX [Concomitant]
  5. PREDNISONE [Concomitant]
  6. ASPIRIN [Concomitant]
  7. CALCIUM [Concomitant]
     Route: 048
  8. PEPTOBISMOL [Concomitant]
  9. METAMUCIL [Concomitant]

REACTIONS (2)
  - Oedema [Not Recovered/Not Resolved]
  - Haemoglobin decreased [Not Recovered/Not Resolved]
